FAERS Safety Report 5203204-3 (Version None)
Quarter: 2006Q4

REPORT INFORMATION
  Report Type: 
  Country: None (occurrence: None)
  Receive Date: 20061027
  Receipt Date: 20060126
  Transmission Date: 20070319
  Serious: Yes (Other)
  Sender: FDA-Public Use
  Company Number: HQWYE538327JAN06

PATIENT
  Age: 70 Year
  Sex: Female
  Weight: 64.01 kg

DRUGS (2)
  1. PREMARIN [Suspect]
     Indication: HORMONE REPLACEMENT THERAPY
     Dosage: 0.625MG AT UNSPECIFIED FREQUENCY, ORAL
     Route: 048
     Dates: end: 20050101
  2. PROGESTERONE [Suspect]
     Indication: HORMONE REPLACEMENT THERAPY
     Dosage: TRANSDERMAL
     Route: 062

REACTIONS (1)
  - VAGINAL HAEMORRHAGE [None]
